FAERS Safety Report 19810643 (Version 3)
Quarter: 2021Q3

REPORT INFORMATION
  Report Type: Spontaneous
  Country: US (occurrence: US)
  Receive Date: 20210909
  Receipt Date: 20210927
  Transmission Date: 20211014
  Serious: Yes (Other)
  Sender: FDA-Public Use
  Company Number: US-PFIZER INC-202101170953

PATIENT
  Age: 11 Day
  Sex: Female

DRUGS (1)
  1. DILANTIN?125 [Suspect]
     Active Substance: PHENYTOIN
     Indication: GENERALISED TONIC-CLONIC SEIZURE
     Dosage: UNK

REACTIONS (7)
  - Overdose [Unknown]
  - Arterial haemorrhage [Unknown]
  - Visual impairment [Unknown]
  - Confusional state [Unknown]
  - Pain [Unknown]
  - Amnesia [Unknown]
  - Coma neonatal [Unknown]
